FAERS Safety Report 4869131-6 (Version None)
Quarter: 2005Q4

REPORT INFORMATION
  Report Type: 
  Country: None (occurrence: None)
  Receive Date: 20051228
  Receipt Date: 20051228
  Transmission Date: 20060501
  Serious: Yes (Hospitalization, Other)
  Sender: FDA-Public Use
  Company Number: None

PATIENT
  Sex: Female
  Weight: 114.55 kg

DRUGS (4)
  1. FLUOROURACIL [Suspect]
     Indication: BREAST CANCER
     Dosage: SEE IMAGE
     Route: 042
     Dates: start: 20051205, end: 20051205
  2. EPIRUBICIN [Suspect]
     Dosage: SEE IMAGE
     Route: 042
     Dates: start: 20051205, end: 20051205
  3. CYCLOPHOSPHAMIDE [Suspect]
     Dosage: SEE IMAGE
     Route: 042
     Dates: start: 20051205, end: 20051205
  4. CELECOXIB [Suspect]
     Dosage: SEE IMAGE
     Route: 048
     Dates: start: 20051205

REACTIONS (2)
  - ASTHMA [None]
  - CONDITION AGGRAVATED [None]
